FAERS Safety Report 18369443 (Version 1)
Quarter: 2020Q4

REPORT INFORMATION
  Report Type: Spontaneous
  Country: PL (occurrence: PL)
  Receive Date: 20201012
  Receipt Date: 20201012
  Transmission Date: 20210114
  Serious: Yes (Death, Other)
  Sender: FDA-Public Use
  Company Number: PL-ROCHE-2693444

PATIENT
  Age: 67 Year
  Sex: Female
  Weight: 86 kg

DRUGS (2)
  1. NORADRENALINE [Concomitant]
     Active Substance: NOREPINEPHRINE
  2. TOCILIZUMAB. [Suspect]
     Active Substance: TOCILIZUMAB
     Indication: COVID-19
     Route: 042
     Dates: start: 20200505, end: 20200505

REACTIONS (6)
  - Respiratory failure [Unknown]
  - Renal failure [Unknown]
  - Death [Fatal]
  - General physical health deterioration [Unknown]
  - Off label use [Unknown]
  - Intentional product use issue [Unknown]

NARRATIVE: CASE EVENT DATE: 20200512
